FAERS Safety Report 6207805-5 (Version None)
Quarter: 2009Q2

REPORT INFORMATION
  Report Type: 
  Country: None (occurrence: None)
  Receive Date: 20090522
  Receipt Date: 20090507
  Transmission Date: 20091009
  Serious: Yes (Hospitalization, Disabling)
  Sender: FDA-Public Use
  Company Number: 2009S1008081

PATIENT
  Age: 68 Year
  Sex: Female

DRUGS (12)
  1. CIPROFLAXACIN [Suspect]
     Indication: URINARY TRACT INFECTION
     Dosage: 250 MG; TWICE A DAY; ORAL
     Route: 048
     Dates: start: 20090401, end: 20090407
  2. ASPIRIN (CON.) [Concomitant]
  3. ATENOLOL (CON.) [Concomitant]
  4. ATORVASTATIN (CON.) [Concomitant]
  5. BENDROFLUAZIDE (CON.) [Concomitant]
  6. CO-CODAMOL (CON.) [Concomitant]
  7. ENALAPRIL (CON.) [Concomitant]
  8. LATANOPROST (CON.) [Concomitant]
  9. LEVOTHYROXINE (CON.) [Concomitant]
  10. LOSARTAN (CON.) [Concomitant]
  11. METHYLDOPA (CON.) [Concomitant]
  12. MIXTARD (CON.) [Concomitant]

REACTIONS (4)
  - CONDITION AGGRAVATED [None]
  - DYSKINESIA [None]
  - MUSCLE SPASMS [None]
  - RENAL FAILURE ACUTE [None]
